FAERS Safety Report 8784256 (Version 1)
Quarter: 2012Q4

REPORT INFORMATION
  Report Type: Spontaneous
  Country: US (occurrence: None)
  Receive Date: 20120905
  Receipt Date: 20120905
  Transmission Date: 20130627
  Serious: Yes (Other)
  Sender: FDA-Public Use
  Company Number: None

PATIENT
  Age: 27 Year
  Sex: Female
  Weight: 74.84 kg

DRUGS (1)
  1. CLOTRIMAZOLE [Suspect]
     Indication: VAGINAL YEAST INFECTION
     Route: 067
     Dates: start: 20120825, end: 20120825

REACTIONS (1)
  - Vaginal laceration [None]
